FAERS Safety Report 6437718-5 (Version None)
Quarter: 2009Q4

REPORT INFORMATION
  Report Type: 
  Country: None (occurrence: None)
  Receive Date: 20091112
  Receipt Date: 20091102
  Transmission Date: 20100525
  Serious: Yes (Other)
  Sender: FDA-Public Use
  Company Number: GB-PFIZER INC-2009270180

PATIENT
  Age: 91 Year
  Sex: Female

DRUGS (1)
  1. ISTIN [Suspect]
     Dosage: 5 MG, 1X/DAY
     Route: 048

REACTIONS (1)
  - HALLUCINATION, VISUAL [None]
